FAERS Safety Report 24287963 (Version 1)
Quarter: 2024Q3

REPORT INFORMATION
  Report Type: Spontaneous
  Country: FR (occurrence: FR)
  Receive Date: 20240905
  Receipt Date: 20240905
  Transmission Date: 20241016
  Serious: Yes (Death, Other)
  Sender: MERCK
  Company Number: None

PATIENT
  Age: 64 Year
  Sex: Female
  Weight: 87 kg

DRUGS (3)
  1. KEYTRUDA [Suspect]
     Active Substance: PEMBROLIZUMAB
     Indication: Lung adenocarcinoma
     Dosage: 200 MG/CYCLE
     Route: 042
     Dates: start: 20240522, end: 20240612
  2. CARBOPLATIN [Suspect]
     Active Substance: CARBOPLATIN
     Indication: Lung adenocarcinoma
     Dosage: 600 MG/ CYCLE
     Route: 042
     Dates: start: 20240522, end: 20240731
  3. PEMETREXED [Suspect]
     Active Substance: PEMETREXED
     Indication: Lung adenocarcinoma
     Dosage: 975 MG/CYCLE
     Route: 042
     Dates: start: 20240522, end: 20240731

REACTIONS (5)
  - Febrile neutropenia [Fatal]
  - Apoptotic colonopathy [Fatal]
  - Septic shock [Fatal]
  - Cholecystitis acute [Fatal]
  - Diarrhoea [Fatal]

NARRATIVE: CASE EVENT DATE: 20240622
